FAERS Safety Report 10307458 (Version 3)
Quarter: 2014Q3

REPORT INFORMATION
  Report Type: Report from Study
  Country: CA (occurrence: CA)
  Receive Date: 20140716
  Receipt Date: 20140915
  Transmission Date: 20150326
  Serious: Yes (Other)
  Sender: FDA-Public Use
  Company Number: PHHY2013CA085801

PATIENT
  Age: 62 Year
  Sex: Female

DRUGS (5)
  1. SANDOSTATIN LAR DEPOT [Suspect]
     Active Substance: OCTREOTIDE ACETATE
     Dosage: 30 MG, EVERY 4 WEEKS
     Route: 030
  2. SANDOSTATIN LAR DEPOT [Suspect]
     Active Substance: OCTREOTIDE ACETATE
     Dosage: 40 MG, EVERY 4 WEEKS
     Route: 030
     Dates: start: 20140322
  3. SANDOSTATIN [Suspect]
     Active Substance: OCTREOTIDE ACETATE
     Indication: METASTATIC CARCINOID TUMOUR
     Dosage: 150 UG, TID
     Route: 058
     Dates: start: 20130802
  4. SANDOSTATIN LAR DEPOT [Suspect]
     Active Substance: OCTREOTIDE ACETATE
     Indication: METASTATIC CARCINOID TUMOUR
     Dosage: 20 MG, EVERY 4 WEEKS
     Route: 030
     Dates: start: 20130810
  5. SANDOSTATIN LAR DEPOT [Suspect]
     Active Substance: OCTREOTIDE ACETATE
     Dosage: 60 MG, EVERY 4 WEEKS
     Route: 030

REACTIONS (23)
  - Pain [Not Recovered/Not Resolved]
  - Metastases to spine [Unknown]
  - Nausea [Unknown]
  - Asthenia [Unknown]
  - Compression fracture [Unknown]
  - Myalgia [Recovering/Resolving]
  - Constipation [Unknown]
  - Abdominal distension [Unknown]
  - Heart rate decreased [Unknown]
  - Abdominal pain [Unknown]
  - Fall [Unknown]
  - Cholelithiasis [Unknown]
  - Osteoarthritis [Unknown]
  - Flushing [Not Recovered/Not Resolved]
  - Tremor [Unknown]
  - Diarrhoea [Not Recovered/Not Resolved]
  - Blood pressure increased [Unknown]
  - Hot flush [Unknown]
  - Abdominal discomfort [Unknown]
  - Dizziness [Unknown]
  - Anxiety [Unknown]
  - Neoplasm progression [Unknown]
  - Injection site mass [Unknown]

NARRATIVE: CASE EVENT DATE: 20130810
